FAERS Safety Report 23482893 (Version 1)
Quarter: 2024Q1

REPORT INFORMATION
  Report Type: Spontaneous
  Country: RO (occurrence: RO)
  Receive Date: 20240205
  Receipt Date: 20240205
  Transmission Date: 20240409
  Serious: Yes (Other)
  Sender: FDA-Public Use
  Company Number: RO-ASTELLAS-2019US042557

PATIENT
  Age: 66 Year
  Sex: Male

DRUGS (3)
  1. ZOLEDRONIC ACID [Suspect]
     Active Substance: ZOLEDRONIC ACID
     Indication: Product used for unknown indication
     Dosage: 4 MG, UNKNOWN FREQ. (PEV)?FORM OF ADMIN: INJECTION
     Route: 065
     Dates: start: 201705
  2. GOSERELIN [Suspect]
     Active Substance: GOSERELIN
     Indication: Product used for unknown indication
     Dosage: 10.8 MG, UNKNOWN FREQ.?FOA: FORMULATION UNKNOWN
     Route: 058
     Dates: start: 201610, end: 201805
  3. XTANDI [Suspect]
     Active Substance: ENZALUTAMIDE
     Indication: Hormone-refractory prostate cancer
     Dosage: 160 MG, ONCE DAILY (AS THE SINGLE DOSE)?FOA: CAPSULE
     Route: 048
     Dates: start: 20170622, end: 201809

REACTIONS (8)
  - Malignant neoplasm progression [Unknown]
  - Prostatic specific antigen increased [Unknown]
  - Blood pressure increased [Unknown]
  - Asthenia [Not Recovered/Not Resolved]
  - General physical health deterioration [Unknown]
  - Hot flush [Unknown]
  - Anaemia [Unknown]
  - Restless legs syndrome [Unknown]

NARRATIVE: CASE EVENT DATE: 20180501
